FAERS Safety Report 9623323 (Version 2)
Quarter: 2013Q4

REPORT INFORMATION
  Report Type: Spontaneous
  Country: GB (occurrence: GB)
  Receive Date: 20131015
  Receipt Date: 20131115
  Transmission Date: 20140711
  Serious: Yes (Hospitalization)
  Sender: FDA-Public Use
  Company Number: PHHY2013GB111043

PATIENT
  Age: 39 Year
  Sex: Female
  Weight: 60 kg

DRUGS (4)
  1. METHOTREXATE [Suspect]
     Indication: ARTHRITIS
     Dosage: 10 MG, UNK
     Dates: start: 201208
  2. METHOTREXATE [Suspect]
     Indication: PSORIATIC ARTHROPATHY
  3. EPILIM CHRONO [Suspect]
     Indication: AFFECTIVE DISORDER
     Dosage: 700 MG, QD
     Route: 048
     Dates: start: 2003
  4. EPILIM CHRONO [Suspect]
     Indication: BIPOLAR DISORDER
     Dosage: 800 MG, QD
     Route: 048

REACTIONS (9)
  - Acute psychosis [Recovering/Resolving]
  - Off label use [Unknown]
  - Mental disorder [Unknown]
  - Drug interaction [Unknown]
  - Drug effect decreased [Unknown]
  - Weight increased [Recovered/Resolved]
  - Hypertrichosis [Unknown]
  - Nausea [Recovered/Resolved]
  - Mouth ulceration [Recovering/Resolving]
